FAERS Safety Report 6435597-3 (Version None)
Quarter: 2009Q4

REPORT INFORMATION
  Report Type: 
  Country: None (occurrence: None)
  Receive Date: 20091111
  Receipt Date: 20091029
  Transmission Date: 20100525
  Serious: No
  Sender: FDA-Public Use
  Company Number: US-JNJFOC-20091100547

PATIENT
  Sex: Female
  Weight: 49.9 kg

DRUGS (15)
  1. FENTANYL TRANSDERMAL SYSTEM [Suspect]
     Route: 062
  2. FENTANYL TRANSDERMAL SYSTEM [Suspect]
     Route: 062
  3. FENTANYL TRANSDERMAL SYSTEM [Suspect]
     Dosage: NDC # 0781-7112-55
     Route: 062
  4. FENTANYL TRANSDERMAL SYSTEM [Suspect]
     Indication: ARTHRALGIA
     Dosage: NDC # 0781-7111-55
     Route: 062
  5. LEVOTHYROXINE SODIUM [Concomitant]
     Indication: THYROID DISORDER
     Route: 048
  6. FLUDROCORTISONE [Concomitant]
     Indication: RENAL DISORDER
     Route: 048
  7. COZAAR [Concomitant]
     Indication: BLOOD PRESSURE
     Route: 048
  8. PREDNISONE [Concomitant]
     Route: 048
  9. FUROSEMIDE [Concomitant]
     Indication: RENAL DISORDER
     Route: 048
  10. SIMVASTATIN [Concomitant]
     Indication: BLOOD CHOLESTEROL
     Dosage: NIGHTLY
     Route: 048
  11. HECTOROL [Concomitant]
     Indication: BONE DISORDER
     Route: 048
  12. AMLODIPINE [Concomitant]
     Route: 048
  13. SODIUM BICARBONATE IN PLASTIC CONTAINER [Concomitant]
     Indication: RENAL DISORDER
     Route: 048
  14. PHOSLO [Concomitant]
     Indication: RENAL DISORDER
     Route: 048
  15. KEFLEX [Concomitant]
     Indication: RENAL DISORDER
     Dosage: AT NIGHT
     Route: 048

REACTIONS (8)
  - ABASIA [None]
  - BACK PAIN [None]
  - CONSTIPATION [None]
  - DIARRHOEA [None]
  - DRUG INEFFECTIVE [None]
  - INCORRECT DRUG ADMINISTRATION DURATION [None]
  - INTENTIONAL DRUG MISUSE [None]
  - PAIN [None]
